FAERS Safety Report 11233787 (Version 2)
Quarter: 2015Q3

REPORT INFORMATION
  Report Type: Report from Study
  Country: BR (occurrence: BR)
  Receive Date: 20150702
  Receipt Date: 20150716
  Transmission Date: 20151125
  Serious: Yes (Other)
  Sender: FDA-Public Use
  Company Number: PHHY2015BR075729

PATIENT
  Sex: Female
  Weight: 58 kg

DRUGS (4)
  1. RIVOTRIL [Concomitant]
     Active Substance: CLONAZEPAM
     Indication: NERVOUSNESS
     Dosage: 2 MG, QD
     Route: 048
  2. DIOVAN [Suspect]
     Active Substance: VALSARTAN
     Indication: HYPERTENSION
     Dosage: 0.5 DF, QD (STARTED APPROXIMATELY 4 YEARS AGO)
     Route: 065
  3. DIOVAN [Suspect]
     Active Substance: VALSARTAN
     Dosage: 10 MG, QD
     Route: 048
  4. ACLASTA [Suspect]
     Active Substance: ZOLEDRONIC ACID
     Indication: OSTEOPOROSIS
     Dosage: 5 MG, ONE APPLICATION PER YEAR
     Route: 042
     Dates: start: 2014

REACTIONS (6)
  - Off label use [Not Recovered/Not Resolved]
  - Tooth infection [Recovering/Resolving]
  - Feeling abnormal [Recovering/Resolving]
  - Excessive cerumen production [Recovered/Resolved]
  - General physical health deterioration [Recovering/Resolving]
  - Nasopharyngitis [Recovering/Resolving]
